FAERS Safety Report 17717743 (Version 1)
Quarter: 2020Q2

REPORT INFORMATION
  Report Type: Spontaneous
  Country: US (occurrence: US)
  Receive Date: 20200427
  Receipt Date: 20200427
  Transmission Date: 20200714
  Serious: Yes (Other)
  Sender: FDA-Public Use
  Company Number: None

PATIENT
  Age: 90 Year
  Sex: Female

DRUGS (1)
  1. OTEZLA [Suspect]
     Active Substance: APREMILAST
     Route: 048
     Dates: start: 20200326, end: 20200427

REACTIONS (3)
  - Abdominal pain upper [None]
  - Creatinine renal clearance decreased [None]
  - Weight decreased [None]

NARRATIVE: CASE EVENT DATE: 20200427
